FAERS Safety Report 26207512 (Version 1)
Quarter: 2025Q4

REPORT INFORMATION
  Report Type: Spontaneous
  Country: TN (occurrence: TN)
  Receive Date: 20251229
  Receipt Date: 20251229
  Transmission Date: 20260118
  Serious: Yes (Other)
  Sender: STRIDES
  Company Number: TN-MLMSERVICE-20251210-PI744770-00222-2

PATIENT
  Age: 83 Year
  Sex: Male

DRUGS (3)
  1. AMOXICILLIN [Suspect]
     Active Substance: AMOXICILLIN
     Indication: Device related infection
     Dosage: UNK
     Route: 048
  2. METRONIDAZOLE [Suspect]
     Active Substance: METRONIDAZOLE
     Indication: Device related infection
     Dosage: UNK
     Route: 048
  3. CIPROFLOXACIN [Suspect]
     Active Substance: CIPROFLOXACIN
     Indication: Device related infection
     Route: 048

REACTIONS (2)
  - AGEP-DRESS overlap [Recovered/Resolved]
  - Blood creatinine increased [Unknown]
